FAERS Safety Report 8874437 (Version 1)
Quarter: 2012Q4

REPORT INFORMATION
  Report Type: 
  Country: ES (occurrence: ES)
  Receive Date: 20121030
  Receipt Date: 20121030
  Transmission Date: 20130627
  Serious: Yes (Other)
  Sender: FDA-Public Use
  Company Number: ES-SPECTRUM PHARMACEUTICALS, INC.-12-Z-ES-00163

PATIENT
  Age: 75 Year

DRUGS (3)
  1. ZEVALIN [Suspect]
     Indication: B-CELL LYMPHOMA
     Dosage: UNK, over 10 minutes within the next four hours of rituximab infusion
     Route: 042
  2. RITUXIMAB [Suspect]
     Indication: B-CELL LYMPHOMA
     Dosage: 250 mg/m2, single
     Route: 042
  3. RITUXIMAB [Suspect]
     Dosage: 250 mg/m2, single
     Route: 042

REACTIONS (1)
  - Neoplasm prostate [Unknown]
